FAERS Safety Report 4280529-X (Version None)
Quarter: 2004Q1

REPORT INFORMATION
  Report Type: 
  Country: None (occurrence: None)
  Receive Date: 20040127
  Receipt Date: 20040121
  Transmission Date: 20041129
  Serious: Yes (Death)
  Sender: FDA-Public Use
  Company Number: GBR-2004-0000870

PATIENT
  Age: 66 Year
  Sex: Female

DRUGS (1)
  1. MORPHINE SULFATE [Suspect]
     Dosage: 50 MG, BID, ORAL
     Route: 048
     Dates: start: 20030423

REACTIONS (1)
  - DEATH [None]
